FAERS Safety Report 16245911 (Version 1)
Quarter: 2019Q2

REPORT INFORMATION
  Report Type: Spontaneous
  Country: US (occurrence: US)
  Receive Date: 20190426
  Receipt Date: 20190426
  Transmission Date: 20190711
  Serious: Yes (Other)
  Sender: FDA-Public Use
  Company Number: US-SA-2017SA021784

PATIENT
  Age: 58 Year
  Sex: Female

DRUGS (4)
  1. LANTUS [Suspect]
     Active Substance: INSULIN GLARGINE
     Indication: DIABETES MELLITUS
     Dosage: 47 DF,QD
     Route: 065
     Dates: start: 2012
  2. LANTUS [Suspect]
     Active Substance: INSULIN GLARGINE
     Dosage: 47 DF,QD
     Route: 065
     Dates: start: 2012
  3. LANTUS [Suspect]
     Active Substance: INSULIN GLARGINE
     Dosage: 56 U, HS,AT BEDTIME
     Route: 065
     Dates: start: 20190327, end: 20190401
  4. LANTUS [Suspect]
     Active Substance: INSULIN GLARGINE
     Dosage: 47 DF,QD
     Route: 065
     Dates: start: 2012

REACTIONS (7)
  - Fatigue [Unknown]
  - Blood glucose increased [Unknown]
  - Headache [Unknown]
  - Diabetes mellitus inadequate control [Unknown]
  - Somnolence [Unknown]
  - Blood glucose increased [Unknown]
  - Product dose omission [Unknown]

NARRATIVE: CASE EVENT DATE: 201701
